FAERS Safety Report 25671748 (Version 3)
Quarter: 2025Q4

REPORT INFORMATION
  Report Type: Spontaneous
  Country: CA (occurrence: CA)
  Receive Date: 20250812
  Receipt Date: 20251209
  Transmission Date: 20260117
  Serious: Yes (Other)
  Sender: MYLAN
  Company Number: CA-PFIZER INC-2016000793

PATIENT
  Sex: Female

DRUGS (46)
  1. NEURONTIN [Suspect]
     Active Substance: GABAPENTIN
     Indication: Product used for unknown indication
     Dosage: UNK
     Dates: start: 20170604, end: 20170607
  2. NEURONTIN [Suspect]
     Active Substance: GABAPENTIN
     Dosage: UNK
  3. LYRICA [Suspect]
     Active Substance: PREGABALIN
     Indication: Paraesthesia
     Dosage: UNK
  4. LYRICA [Suspect]
     Active Substance: PREGABALIN
     Indication: Paraesthesia
     Dosage: UNK
  5. PANTOPRAZOLE SODIUM [Suspect]
     Active Substance: PANTOPRAZOLE SODIUM
     Indication: Product used for unknown indication
     Dosage: 40 MILLIGRAM
  6. PANTOPRAZOLE SODIUM [Suspect]
     Active Substance: PANTOPRAZOLE SODIUM
     Dosage: 40 MILLIGRAM
  7. ENTYVIO [Suspect]
     Active Substance: VEDOLIZUMAB
     Indication: Colitis ulcerative
     Dosage: 300 MILLIGRAM
  8. ENTYVIO [Suspect]
     Active Substance: VEDOLIZUMAB
     Dosage: 300 MILLIGRAM
  9. ENTYVIO [Suspect]
     Active Substance: VEDOLIZUMAB
     Dosage: 300 MG, CYCLIC(EVERY SIX WEEKS)
  10. ENTYVIO [Suspect]
     Active Substance: VEDOLIZUMAB
     Dosage: 300 MG, CYCLIC(EVERY SIX WEEKS)
  11. ENTYVIO [Suspect]
     Active Substance: VEDOLIZUMAB
     Dosage: 300 MG, CYCLIC(EVERY SIX WEEKS)
  12. ENTYVIO [Suspect]
     Active Substance: VEDOLIZUMAB
     Dosage: 300 MILLIGRAM, CYCLIC (Q4WEEKS)
  13. ENTYVIO [Suspect]
     Active Substance: VEDOLIZUMAB
     Dosage: 300 MILLIGRAM, CYCLIC (Q4WEEKS)
  14. ENTYVIO [Suspect]
     Active Substance: VEDOLIZUMAB
     Dosage: 300 MILLIGRAM, CYCLIC (Q4WEEKS)
  15. ENTYVIO [Suspect]
     Active Substance: VEDOLIZUMAB
     Dosage: 300 MILLIGRAM, CYCLIC (Q4WEEKS)
  16. ENTYVIO [Suspect]
     Active Substance: VEDOLIZUMAB
     Dosage: 300 MILLIGRAM (1 EVERY 4 WEEKS)
  17. ENTYVIO [Suspect]
     Active Substance: VEDOLIZUMAB
     Dosage: 300 MILLIGRAM (1 EVERY 6 WEEKS)
  18. ENTYVIO [Suspect]
     Active Substance: VEDOLIZUMAB
     Dosage: 300 MILLIGRAM
  19. ENTYVIO [Suspect]
     Active Substance: VEDOLIZUMAB
     Dosage: 300 MILLIGRAM (4 EVERY 1 WEEK)
  20. ENTYVIO [Suspect]
     Active Substance: VEDOLIZUMAB
     Dosage: 300 MILLIGRAM (6 EVERY 1 WEEK)
  21. ENTYVIO [Suspect]
     Active Substance: VEDOLIZUMAB
     Indication: Colitis ulcerative
     Dosage: 300 MILLIGRAM
  22. PANTOPRAZOLE SODIUM [Suspect]
     Active Substance: PANTOPRAZOLE SODIUM
     Indication: Product used for unknown indication
     Dosage: 40 MILLIGRAM
  23. VEDOLIZUMAB [Suspect]
     Active Substance: VEDOLIZUMAB
     Indication: Colitis ulcerative
     Dosage: 300 MILLIGRAM
  24. VEDOLIZUMAB [Suspect]
     Active Substance: VEDOLIZUMAB
     Dosage: 300 MILLIGRAM
  25. VEDOLIZUMAB [Suspect]
     Active Substance: VEDOLIZUMAB
     Dosage: 300 MILLIGRAM, 6XW (Q6WEEKS)
  26. VEDOLIZUMAB [Suspect]
     Active Substance: VEDOLIZUMAB
     Dosage: 300 MILLIGRAM, 6XW (Q6WEEKS)
  27. VEDOLIZUMAB [Suspect]
     Active Substance: VEDOLIZUMAB
     Dosage: 300 MILLIGRAM, 4XW (Q4WEEKS)
  28. VEDOLIZUMAB [Suspect]
     Active Substance: VEDOLIZUMAB
     Dosage: 300 MILLIGRAM, 4XW (Q4WEEKS)
  29. VEDOLIZUMAB [Suspect]
     Active Substance: VEDOLIZUMAB
     Dosage: 300 MILLIGRAM, 4XW (Q4WEEKS)
  30. VEDOLIZUMAB [Suspect]
     Active Substance: VEDOLIZUMAB
     Dosage: 300 MILLIGRAM, 6XW (Q6WEEKS)
  31. PANTOPRAZOLE SODIUM [Suspect]
     Active Substance: PANTOPRAZOLE SODIUM
     Indication: Product used for unknown indication
     Dosage: 40 MILLIGRAM
  32. PANTOPRAZOLE SODIUM [Suspect]
     Active Substance: PANTOPRAZOLE SODIUM
     Indication: Product used for unknown indication
     Dosage: 40 MILLIGRAM
  33. IMURAN [Concomitant]
     Active Substance: AZATHIOPRINE
     Indication: Product used for unknown indication
     Dosage: UNK
  34. AVAPRO [Concomitant]
     Active Substance: IRBESARTAN
     Indication: Product used for unknown indication
     Dosage: UNK
  35. ORTHO-NOVUM 777 [Concomitant]
     Active Substance: ETHINYL ESTRADIOL\NORETHINDRONE
     Indication: Product used for unknown indication
     Dosage: UNK, QD
  36. ORTHO-NOVUM 777 [Concomitant]
     Active Substance: ETHINYL ESTRADIOL\NORETHINDRONE
     Dosage: UNK, QD
  37. VITAMIN D NOS [Concomitant]
     Active Substance: CHOLECALCIFEROL\ERGOCALCIFEROL
     Indication: Product used for unknown indication
     Dosage: 10000 INTERNATIONAL UNIT
  38. VITAMIN D NOS [Concomitant]
     Active Substance: CHOLECALCIFEROL\ERGOCALCIFEROL
     Dosage: UNK
  39. PULMICORT TURBUHALER [Concomitant]
     Active Substance: BUDESONIDE
     Indication: Product used for unknown indication
     Dosage: UNK
  40. VENTOLIN [Concomitant]
     Active Substance: ALBUTEROL SULFATE
     Indication: Product used for unknown indication
     Dosage: UNK
  41. ACETAMINOPHEN [Concomitant]
     Active Substance: ACETAMINOPHEN
     Indication: Premedication
     Dosage: 975 MILLIGRAM
  42. CORTIFOAM [Concomitant]
     Active Substance: HYDROCORTISONE ACETATE
     Indication: Product used for unknown indication
     Dosage: UNK
  43. TYLENOL [Concomitant]
     Active Substance: ACETAMINOPHEN
     Indication: Product used for unknown indication
     Dosage: UNK
  44. ETHINYL ESTRADIOL [Concomitant]
     Active Substance: ETHINYL ESTRADIOL
     Dosage: UNK, QD (1 EVERY 1 DAY)
  45. AZATHIOPRINE SODIUM [Concomitant]
     Active Substance: AZATHIOPRINE SODIUM
     Dosage: UNK
  46. ETHINYL ESTRADIOL\NORETHINDRONE [Concomitant]
     Active Substance: ETHINYL ESTRADIOL\NORETHINDRONE
     Dosage: UNK, QD

REACTIONS (30)
  - Haematochezia [Not Recovered/Not Resolved]
  - Mucous stools [Not Recovered/Not Resolved]
  - Diarrhoea [Not Recovered/Not Resolved]
  - Eye pain [Not Recovered/Not Resolved]
  - Balance disorder [Not Recovered/Not Resolved]
  - Influenza [Not Recovered/Not Resolved]
  - Fatigue [Not Recovered/Not Resolved]
  - Nasopharyngitis [Not Recovered/Not Resolved]
  - Nasal discharge discolouration [Not Recovered/Not Resolved]
  - Cough [Not Recovered/Not Resolved]
  - Pyrexia [Not Recovered/Not Resolved]
  - Back disorder [Not Recovered/Not Resolved]
  - Limb discomfort [Not Recovered/Not Resolved]
  - Hypoaesthesia [Not Recovered/Not Resolved]
  - Peripheral coldness [Not Recovered/Not Resolved]
  - Visual impairment [Not Recovered/Not Resolved]
  - Inflammation [Not Recovered/Not Resolved]
  - Disturbance in attention [Not Recovered/Not Resolved]
  - Dizziness [Not Recovered/Not Resolved]
  - Pain in extremity [Not Recovered/Not Resolved]
  - Headache [Not Recovered/Not Resolved]
  - Ovarian cystectomy [Unknown]
  - Abdominal pain [Not Recovered/Not Resolved]
  - Confusional state [Not Recovered/Not Resolved]
  - Platelet count increased [Not Recovered/Not Resolved]
  - Urinary tract infection [Not Recovered/Not Resolved]
  - Ovarian cyst [Not Recovered/Not Resolved]
  - Defaecation urgency [Not Recovered/Not Resolved]
  - Off label use [Not Recovered/Not Resolved]
  - Therapeutic reaction time decreased [Not Recovered/Not Resolved]

NARRATIVE: CASE EVENT DATE: 20150101
